FAERS Safety Report 24996670 (Version 3)
Quarter: 2025Q1

REPORT INFORMATION
  Report Type: Spontaneous
  Country: CN (occurrence: CN)
  Receive Date: 20250221
  Receipt Date: 20250314
  Transmission Date: 20250409
  Serious: Yes (Hospitalization, Other)
  Sender: Kenvue
  Company Number: CN-KENVUE-20250202736

PATIENT

DRUGS (1)
  1. MENS ROGAINE EXTRA STRENGTH [Suspect]
     Active Substance: MINOXIDIL
     Indication: Product used for unknown indication
     Dosage: 5 DROP, TWICE A DAY (ONCE IN THE MORNING AND EVENING, INTERMITTENT USE)
     Route: 065
     Dates: start: 20241120, end: 202501

REACTIONS (4)
  - Ventricular extrasystoles [Recovering/Resolving]
  - Mitral valve incompetence [Recovering/Resolving]
  - Sinus arrhythmia [Recovering/Resolving]
  - Incorrect dose administered [Unknown]

NARRATIVE: CASE EVENT DATE: 20241120
